FAERS Safety Report 9682986 (Version 2)
Quarter: 2014Q2

REPORT INFORMATION
  Report Type: Spontaneous
  Country: US (occurrence: US)
  Receive Date: 20131112
  Receipt Date: 20140509
  Transmission Date: 20141212
  Serious: No
  Sender: FDA-Public Use
  Company Number: US-PFIZER INC-2013318153

PATIENT
  Age: 16 Year
  Sex: Female
  Weight: 61.22 kg

DRUGS (3)
  1. ADVIL [Suspect]
     Indication: HEADACHE
     Dosage: UNK, TOOK ONLY ONCE
     Route: 048
     Dates: start: 201310, end: 201310
  2. CETIRIZINE [Concomitant]
     Indication: HYPERSENSITIVITY
     Dosage: UNK
  3. PROZAC [Concomitant]
     Dosage: 40 MG, UNK

REACTIONS (6)
  - Wrong technique in drug usage process [Unknown]
  - Pharyngeal hypoaesthesia [Recovered/Resolved]
  - Throat irritation [Recovered/Resolved]
  - Oropharyngeal pain [Recovered/Resolved]
  - Odynophagia [Recovering/Resolving]
  - Nausea [Not Recovered/Not Resolved]
